FAERS Safety Report 9940843 (Version 3)
Quarter: 2014Q2

REPORT INFORMATION
  Report Type: Spontaneous
  Country: US (occurrence: US)
  Receive Date: 20140303
  Receipt Date: 20140514
  Transmission Date: 20141212
  Serious: No
  Sender: FDA-Public Use
  Company Number: US-PFIZER INC-2014058087

PATIENT
  Age: 62 Year
  Sex: Female

DRUGS (12)
  1. LYRICA [Suspect]
     Indication: FIBROMYALGIA
     Dosage: 75 MG, 3X/DAY
     Route: 048
     Dates: start: 2010
  2. ALPRAZOLAM [Concomitant]
     Dosage: 0.5 MG, AS NEEDED
  3. AMLODIPINE [Concomitant]
     Dosage: 5 MG, 1X/DAY
  4. FIORINAL [Concomitant]
     Dosage: UNK
  5. FLUTICASONE NS [Concomitant]
     Dosage: UNK
  6. KLOR CON [Concomitant]
     Dosage: 8 MG, UNK
  7. NORCO [Concomitant]
     Dosage: HYDROCODONE BITARTRATE 10/ 325 PARACETAMOL PRN)
  8. PROMETHAZINE [Concomitant]
     Dosage: 25 MG, AS NEEDED
  9. SYNTHROID [Concomitant]
     Dosage: 25 UG, 1X/DAY
  10. VALTREX [Concomitant]
     Dosage: 1 G, AS NEEDED
  11. ZOLPIDEM [Concomitant]
     Dosage: 10 MG, AS NEEDED
  12. ZOVIRAX [Concomitant]
     Dosage: UNK
     Route: 061

REACTIONS (1)
  - Seasonal allergy [Recovered/Resolved]
